FAERS Safety Report 9464794 (Version 1)
Quarter: 2013Q3

REPORT INFORMATION
  Report Type: Spontaneous
  Country: US (occurrence: US)
  Receive Date: 20130819
  Receipt Date: 20130819
  Transmission Date: 20140515
  Serious: Yes (Hospitalization)
  Sender: FDA-Public Use
  Company Number: US-GLAXOSMITHKLINE-B0916051A

PATIENT
  Age: 70 Year
  Sex: Male

DRUGS (2)
  1. AVANDAMET [Suspect]
     Indication: DIABETES MELLITUS
     Route: 048
     Dates: start: 20040113, end: 20040706
  2. AVANDIA [Suspect]
     Indication: DIABETES MELLITUS
     Dosage: 4MG PER DAY
     Route: 048
     Dates: start: 20050420, end: 20091026

REACTIONS (4)
  - Cardiac disorder [Not Recovered/Not Resolved]
  - Vascular graft [Unknown]
  - Hypertension [Unknown]
  - Fatigue [Unknown]
